FAERS Safety Report 5745094-6 (Version None)
Quarter: 2008Q2

REPORT INFORMATION
  Report Type: 
  Country: None (occurrence: None)
  Receive Date: 20080521
  Receipt Date: 20080519
  Transmission Date: 20081010
  Serious: Yes (Hospitalization, Other)
  Sender: FDA-Public Use
  Company Number: US-BRISTOL-MYERS SQUIBB COMPANY-14195747

PATIENT
  Age: 17 Year
  Sex: Male

DRUGS (7)
  1. ISONIAZID [Suspect]
     Indication: HIV INFECTION
  2. STAVUDINE [Suspect]
     Indication: HIV INFECTION
  3. ABACAVIR [Suspect]
     Indication: HIV INFECTION
  4. ETHAMBUTOL HYDROCHLORIDE [Suspect]
     Indication: TUBERCULOSIS
  5. LAMIVUDINE [Suspect]
     Indication: HIV INFECTION
  6. PYRAZINAMIDE [Suspect]
     Indication: TUBERCULOSIS
  7. RIFAMPICIN [Suspect]
     Indication: TUBERCULOSIS

REACTIONS (3)
  - CARDIAC TAMPONADE [None]
  - IMMUNE RECONSTITUTION SYNDROME [None]
  - TUBERCULOSIS [None]
